FAERS Safety Report 8080056-8 (Version None)
Quarter: 2012Q1

REPORT INFORMATION
  Report Type: 
  Country: None (occurrence: None)
  Receive Date: 20120128
  Receipt Date: 20110725
  Transmission Date: 20120608
  Serious: No
  Sender: FDA-Public Use
  Company Number: US-ABBOTT-11P-163-0841354-00

PATIENT
  Sex: Male
  Weight: 62.652 kg

DRUGS (9)
  1. FOLIC ACID [Concomitant]
     Indication: VITAMIN SUPPLEMENTATION
  2. POTASSIUM [Concomitant]
     Indication: MINERAL SUPPLEMENTATION
  3. VENOFER [Concomitant]
     Indication: CROHN'S DISEASE
  4. HUMIRA [Suspect]
     Indication: CROHN'S DISEASE
  5. HUMIRA [Suspect]
     Dates: end: 20110701
  6. VITAMIN TAB [Concomitant]
     Indication: VITAMIN SUPPLEMENTATION
  7. IMODIUM [Concomitant]
     Indication: CROHN'S DISEASE
  8. MAGNESIUM BY INFUSION [Concomitant]
     Indication: MINERAL SUPPLEMENTATION
  9. CREON 12 [Concomitant]
     Indication: CROHN'S DISEASE

REACTIONS (4)
  - SCAB [None]
  - HERPES ZOSTER [None]
  - RASH [None]
  - BLISTER [None]
